FAERS Safety Report 15672715 (Version 1)
Quarter: 2018Q4

REPORT INFORMATION
  Report Type: Report from Study
  Country: US (occurrence: US)
  Receive Date: 20181129
  Receipt Date: 20181129
  Transmission Date: 20190205
  Serious: No
  Sender: FDA-Public Use
  Company Number: US-TESARO-US-2017TSO04057

PATIENT
  Age: 57 Year
  Sex: Female

DRUGS (10)
  1. ZEJULA [Suspect]
     Active Substance: NIRAPARIB
     Dosage: 300 MG, QD
     Route: 048
  2. ZEJULA [Suspect]
     Active Substance: NIRAPARIB
     Dosage: 300 MG, UNK
     Route: 048
  3. ZEJULA [Suspect]
     Active Substance: NIRAPARIB
     Dosage: 300 MG, QD
     Route: 048
  4. ZEJULA [Suspect]
     Active Substance: NIRAPARIB
     Indication: FALLOPIAN TUBE CANCER
     Dosage: 300 MG, QD
     Route: 048
  5. ZEJULA [Suspect]
     Active Substance: NIRAPARIB
     Dosage: 200 MG, QPM WITH FOOD
     Route: 048
  6. ZEJULA [Suspect]
     Active Substance: NIRAPARIB
     Dosage: 300 MG, QD
     Route: 048
  7. ZEJULA [Suspect]
     Active Substance: NIRAPARIB
     Dosage: 300 MG, UNK
     Route: 048
     Dates: start: 20171104
  8. ZEJULA [Suspect]
     Active Substance: NIRAPARIB
     Dosage: 300 MG, QD
     Route: 048
  9. ZEJULA [Suspect]
     Active Substance: NIRAPARIB
     Dosage: 300 MG, QD
     Route: 048
     Dates: start: 20171130
  10. ZEJULA [Suspect]
     Active Substance: NIRAPARIB
     Dosage: 300 MG, QD
     Route: 048

REACTIONS (21)
  - Haemoptysis [Not Recovered/Not Resolved]
  - Hot flush [Not Recovered/Not Resolved]
  - Sinusitis [Not Recovered/Not Resolved]
  - Seasonal allergy [Unknown]
  - Sinus headache [Recovered/Resolved]
  - Nasopharyngitis [Recovered/Resolved]
  - Nasal congestion [Not Recovered/Not Resolved]
  - Arthropod bite [Unknown]
  - Respiratory disorder [Unknown]
  - Nausea [Recovered/Resolved]
  - Alopecia [Not Recovered/Not Resolved]
  - Loss of personal independence in daily activities [Unknown]
  - Red blood cell count decreased [Unknown]
  - Anxiety [Recovered/Resolved]
  - Retching [Not Recovered/Not Resolved]
  - Rhinorrhoea [Recovered/Resolved]
  - Nasal crusting [Not Recovered/Not Resolved]
  - Upper-airway cough syndrome [Recovering/Resolving]
  - Epistaxis [Not Recovered/Not Resolved]
  - Anaemia [Unknown]
  - Blood count abnormal [Unknown]

NARRATIVE: CASE EVENT DATE: 201810
